FAERS Safety Report 9782567 (Version 1)
Quarter: 2013Q4

REPORT INFORMATION
  Report Type: Spontaneous
  Country: AU (occurrence: AU)
  Receive Date: 20131226
  Receipt Date: 20131226
  Transmission Date: 20140711
  Serious: Yes (Other)
  Sender: FDA-Public Use
  Company Number: PHHY2013AU150988

PATIENT
  Sex: Female

DRUGS (1)
  1. LETROZOLE [Suspect]
     Dosage: UNK

REACTIONS (1)
  - Neoplasm progression [Unknown]
